FAERS Safety Report 20210239 (Version 1)
Quarter: 2021Q4

REPORT INFORMATION
  Report Type: Spontaneous
  Country: CN (occurrence: CN)
  Receive Date: 20211221
  Receipt Date: 20211221
  Transmission Date: 20220303
  Serious: Yes (Hospitalization, Other)
  Sender: FDA-Public Use
  Company Number: CN-SA-SAC20211217000223

PATIENT
  Age: 85 Year
  Sex: Male
  Weight: 60 kg

DRUGS (4)
  1. ENOXAPARIN SODIUM [Suspect]
     Active Substance: ENOXAPARIN SODIUM
     Indication: Hypercoagulation
     Dosage: 4000 IU, BID
     Route: 058
     Dates: start: 20211118, end: 20211123
  2. CLOPIDOGREL BISULFATE [Concomitant]
     Active Substance: CLOPIDOGREL BISULFATE
     Indication: Hypercoagulation
     Dosage: 75 MG, QD
     Route: 048
     Dates: start: 20211118, end: 20211123
  3. CEFOPERAZONE [Concomitant]
     Active Substance: CEFOPERAZONE
     Dosage: UNK
     Dates: end: 20211123
  4. TAZOBACTAM [Concomitant]
     Active Substance: TAZOBACTAM
     Dosage: UNK
     Dates: end: 20211123

REACTIONS (1)
  - Pancytopenia [Unknown]

NARRATIVE: CASE EVENT DATE: 20211123
